FAERS Safety Report 13471065 (Version 1)
Quarter: 2017Q2

REPORT INFORMATION
  Report Type: Spontaneous
  Country: US (occurrence: US)
  Receive Date: 20170424
  Receipt Date: 20170424
  Transmission Date: 20170830
  Serious: Yes (Life-Threatening, Other)
  Sender: FDA-Public Use
  Company Number: US-SUN PHARMACEUTICAL INDUSTRIES LTD-2017US-138858

PATIENT
  Age: 14 Year
  Sex: Male

DRUGS (3)
  1. TEMOZOLOMIDE. [Suspect]
     Active Substance: TEMOZOLOMIDE
     Indication: METASTATIC NEOPLASM
     Dosage: UNK
     Route: 065
  2. TEMSIROLIMUS [Interacting]
     Active Substance: TEMSIROLIMUS
     Indication: METASTATIC NEOPLASM
     Dosage: UNK
     Route: 065
  3. IRINOTECAN [Suspect]
     Active Substance: IRINOTECAN
     Indication: METASTATIC NEOPLASM
     Dosage: UNK
     Route: 065

REACTIONS (3)
  - Drug interaction [Unknown]
  - Disease progression [Unknown]
  - Drug ineffective [Unknown]
